FAERS Safety Report 17004839 (Version 1)
Quarter: 2019Q4

REPORT INFORMATION
  Report Type: Spontaneous
  Country: CA (occurrence: CA)
  Receive Date: 20191107
  Receipt Date: 20191107
  Transmission Date: 20200122
  Serious: Yes (Other)
  Sender: FDA-Public Use
  Company Number: CA-PFIZER INC-2019321902

PATIENT
  Age: 72 Year
  Sex: Male

DRUGS (6)
  1. ASPIRIN. [Concomitant]
     Active Substance: ASPIRIN
     Dosage: 81 MG, 1X/DAY
     Dates: start: 2019
  2. XELJANZ [Suspect]
     Active Substance: TOFACITINIB CITRATE
     Indication: COLITIS ULCERATIVE
     Dosage: 10 MG, 2X/DAY
     Route: 048
     Dates: start: 20190717, end: 20191030
  3. CORTIMENT [Concomitant]
     Dosage: UNK (TAPERING)
     Dates: start: 2019
  4. CARVEDILOL. [Concomitant]
     Active Substance: CARVEDILOL
     Dosage: 12.5 MG
  5. CORTIMENT [Concomitant]
     Dosage: UNK, DAILY
     Dates: start: 2019, end: 20191030
  6. CARVEDILOL. [Concomitant]
     Active Substance: CARVEDILOL
     Dosage: 12.5 MG, DAILY

REACTIONS (5)
  - Intestinal haemorrhage [Unknown]
  - Haemoglobin decreased [Unknown]
  - Abdominal discomfort [Unknown]
  - Drug ineffective [Unknown]
  - Colitis ulcerative [Recovered/Resolved]
